FAERS Safety Report 18493199 (Version 1)
Quarter: 2020Q4

REPORT INFORMATION
  Report Type: Spontaneous
  Country: US (occurrence: US)
  Receive Date: 20201111
  Receipt Date: 20201111
  Transmission Date: 20210114
  Serious: No
  Sender: FDA-Public Use
  Company Number: US-TAKEDA-2020TUS045067

PATIENT
  Sex: Female
  Weight: 52.15 kg

DRUGS (20)
  1. EPINEPHRINE. [Concomitant]
     Active Substance: EPINEPHRINE
  2. SUDAFED [GUAIFENESIN;PSEUDOEPHEDRINE HYDROCHLORIDE] [Concomitant]
     Active Substance: GUAIFENESIN\PSEUDOEPHEDRINE HYDROCHLORIDE
  3. ACETAMINOPHEN. [Concomitant]
     Active Substance: ACETAMINOPHEN
  4. DIAZEPAM. [Concomitant]
     Active Substance: DIAZEPAM
  5. IPRATROPIUM BROMIDE AND ALBUTEROL SULFATE [Concomitant]
     Active Substance: ALBUTEROL SULFATE\IPRATROPIUM BROMIDE
  6. LMX [AMOXICILLIN TRIHYDRATE;BACILLUS COAGULANS] [Concomitant]
  7. DIPHENHYDRAMINE. [Concomitant]
     Active Substance: DIPHENHYDRAMINE
  8. HEPARIN [Concomitant]
     Active Substance: HEPARIN SODIUM
  9. PREDNISONE. [Concomitant]
     Active Substance: PREDNISONE
  10. POTASSIUM CHLORIDE. [Concomitant]
     Active Substance: POTASSIUM CHLORIDE
  11. BC [ACETYLSALICYLIC ACID;CAFFEINE;SALICYLAMIDE] [Concomitant]
  12. SULFAMETHOXAZOLE AND TRIMETHOPRIM [Concomitant]
     Active Substance: SULFAMETHOXAZOLE\TRIMETHOPRIM
  13. GAMMAGARD LIQUID [Suspect]
     Active Substance: HUMAN IMMUNOGLOBULIN G
     Indication: IMMUNODEFICIENCY COMMON VARIABLE
     Dosage: 20 GRAM, Q4WEEKS
     Route: 042
     Dates: start: 20200609
  14. LUMIGAN [Concomitant]
     Active Substance: BIMATOPROST
  15. NORMAL SALINE [Concomitant]
     Active Substance: SODIUM CHLORIDE
  16. FORTEO [Concomitant]
     Active Substance: TERIPARATIDE
  17. ATORVASTATIN [Concomitant]
     Active Substance: ATORVASTATIN
  18. VITAMIN D3 [Concomitant]
     Active Substance: CHOLECALCIFEROL
  19. CHLORPHENIRAMINE MALEATE. [Concomitant]
     Active Substance: CHLORPHENIRAMINE MALEATE
  20. PSEUDOEPHEDRINE. [Concomitant]
     Active Substance: PSEUDOEPHEDRINE HYDROCHLORIDE

REACTIONS (1)
  - Asthma [Unknown]
